FAERS Safety Report 4552150-7 (Version None)
Quarter: 2004Q4

REPORT INFORMATION
  Report Type: 
  Country: None (occurrence: None)
  Receive Date: 20041217
  Receipt Date: 20040823
  Transmission Date: 20050328
  Serious: No
  Sender: FDA-Public Use
  Company Number: 2004-BP-05927BP(1)

PATIENT
  Sex: Female

DRUGS (10)
  1. SPIRIVA [Suspect]
     Indication: CHRONIC OBSTRUCTIVE AIRWAYS DISEASE
     Dosage: 18 MCG (18 MCG), IH
     Route: 055
     Dates: start: 20040612, end: 20040706
  2. MIACALCIN [Suspect]
     Indication: OSTEOPOROSIS
     Dates: start: 20040612, end: 20040706
  3. AZMACORT [Concomitant]
  4. PREDNISONE [Concomitant]
  5. CYCLOBENZAPRINE (CYCLOBENZAPRINE) [Concomitant]
  6. APRAZALON [Concomitant]
  7. PRILOSEC [Concomitant]
  8. VIOXX [Concomitant]
  9. ALBUTEROL [Concomitant]
  10. OXYGEN (OXYGEN) [Concomitant]

REACTIONS (6)
  - ARTHRALGIA [None]
  - CHEST PAIN [None]
  - DYSGEUSIA [None]
  - DYSPHAGIA [None]
  - LIMB DISCOMFORT [None]
  - NECK PAIN [None]
